FAERS Safety Report 25014850 (Version 1)
Quarter: 2025Q1

REPORT INFORMATION
  Report Type: Spontaneous
  Country: NL (occurrence: NL)
  Receive Date: 20250226
  Receipt Date: 20250226
  Transmission Date: 20250408
  Serious: Yes (Other)
  Sender: TEVA
  Company Number: None

PATIENT
  Age: 22 Year
  Sex: Female
  Weight: 49 kg

DRUGS (1)
  1. FLUOXETINE [Suspect]
     Active Substance: FLUOXETINE HYDROCHLORIDE
     Indication: Product used for unknown indication
     Route: 065
     Dates: start: 20250131

REACTIONS (5)
  - Syncope [Recovering/Resolving]
  - Fatigue [Recovering/Resolving]
  - Trismus [Recovering/Resolving]
  - Vomiting [Recovering/Resolving]
  - Nystagmus [Recovering/Resolving]
